FAERS Safety Report 8955359 (Version 1)
Quarter: 2012Q4

REPORT INFORMATION
  Report Type: Report from Study
  Country: US (occurrence: US)
  Receive Date: 20121207
  Receipt Date: 20121207
  Transmission Date: 20130627
  Serious: Yes (Hospitalization)
  Sender: FDA-Public Use
  Company Number: US-ABBOTT-12P-163-0973549-00

PATIENT
  Age: 55 None
  Sex: Female
  Weight: 54.93 kg

DRUGS (9)
  1. HUMIRA 40 MG/0.8 ML PEN [Suspect]
     Indication: ANKYLOSING SPONDYLITIS
     Dosage: 1ST DOSE
     Dates: start: 20120821, end: 20120821
  2. HUMIRA 40 MG/0.8 ML PEN [Suspect]
     Indication: PSORIASIS
     Dosage: 2ND DOSE
     Dates: start: 20120925, end: 20120925
  3. HUMIRA 40 MG/0.8 ML PEN [Suspect]
     Indication: SPINAL OSTEOARTHRITIS
     Dosage: 3RD DOSE
     Dates: start: 20121013, end: 20121013
  4. MOBIC [Suspect]
     Indication: ARTHRITIS
     Route: 048
  5. IBUPROFEN [Suspect]
     Indication: PRODUCT USED FOR UNKNOWN INDICATION
  6. IRON [Concomitant]
  7. VITAMIN D3 [Concomitant]
  8. PROBIOTICS [Concomitant]
     Indication: URINARY TRACT DISORDER
  9. PROBIOTICS [Concomitant]
     Indication: VAGINAL DISORDER

REACTIONS (19)
  - Perirectal abscess [Not Recovered/Not Resolved]
  - Skin irritation [Unknown]
  - Injection site pain [Not Recovered/Not Resolved]
  - Rash [Unknown]
  - Pain in extremity [Unknown]
  - Injection site bruising [Recovered/Resolved]
  - Injection site erythema [Not Recovered/Not Resolved]
  - Injection site warmth [Not Recovered/Not Resolved]
  - Injection site papule [Not Recovered/Not Resolved]
  - Abdominal pain upper [Not Recovered/Not Resolved]
  - Abdominal discomfort [Not Recovered/Not Resolved]
  - Glossodynia [Not Recovered/Not Resolved]
  - Oropharyngeal pain [Not Recovered/Not Resolved]
  - Oesophageal pain [Not Recovered/Not Resolved]
  - Injection site swelling [Not Recovered/Not Resolved]
  - Injection site erythema [Not Recovered/Not Resolved]
  - Epistaxis [Not Recovered/Not Resolved]
  - Sinus headache [Not Recovered/Not Resolved]
  - Pyrexia [Unknown]
